FAERS Safety Report 25971257 (Version 1)
Quarter: 2025Q4

REPORT INFORMATION
  Report Type: Spontaneous
  Country: CN (occurrence: CN)
  Receive Date: 20251028
  Receipt Date: 20251028
  Transmission Date: 20260118
  Serious: Yes (Life-Threatening, Hospitalization, Other)
  Sender: PFIZER
  Company Number: CN-PFIZER INC-PV202500126439

PATIENT
  Age: 7 Year
  Sex: Male
  Weight: 27.5 kg

DRUGS (12)
  1. CYTARABINE [Suspect]
     Active Substance: CYTARABINE
     Indication: Lymphadenopathy
     Dosage: 0.03 G, 1X/DAY
     Route: 037
     Dates: start: 20251017, end: 20251017
  2. CYTARABINE [Suspect]
     Active Substance: CYTARABINE
     Dosage: 0.03 G, 1X/DAY
     Route: 037
     Dates: start: 20251020
  3. METHOTREXATE SODIUM [Suspect]
     Active Substance: METHOTREXATE SODIUM
     Indication: Lymphadenopathy
     Dosage: 12 MG, 1X/DAY
     Route: 037
     Dates: start: 20251017, end: 20251017
  4. METHOTREXATE SODIUM [Suspect]
     Active Substance: METHOTREXATE SODIUM
     Dosage: 12 MG, 1X/DAY
     Route: 037
     Dates: start: 20251020
  5. PEGASPARGASE [Suspect]
     Active Substance: PEGASPARGASE
     Indication: Lymphadenopathy
     Dosage: 3.6 ML, 1X/DAY
     Route: 030
     Dates: start: 20251014, end: 20251014
  6. DEXRAZOXANE [Suspect]
     Active Substance: DEXRAZOXANE
     Indication: Lymphadenopathy
     Dosage: 200 MG, 1X/DAY
     Route: 041
     Dates: start: 20251013, end: 20251013
  7. CYCLOPHOSPHAMIDE [Suspect]
     Active Substance: CYCLOPHOSPHAMIDE
     Indication: Lymphadenopathy
     Dosage: 1 G, 1X/DAY
     Route: 041
     Dates: start: 20251015, end: 20251015
  8. DAUNORUBICIN HYDROCHLORIDE [Suspect]
     Active Substance: DAUNORUBICIN HYDROCHLORIDE
     Indication: Lymphadenopathy
     Dosage: 32 MG, 1X/DAY
     Route: 041
     Dates: start: 20251013, end: 20251013
  9. VINCRISTINE SULFATE [Suspect]
     Active Substance: VINCRISTINE SULFATE
     Indication: Lymphadenopathy
     Dosage: 1.6 MG, 1X/DAY
     Route: 042
     Dates: start: 20251013, end: 20251013
  10. N-(HYDROXYMETHYL)NICOTINAMIDE [Suspect]
     Active Substance: N-(HYDROXYMETHYL)NICOTINAMIDE
     Indication: Lymphadenopathy
     Dosage: 1 G, 2X/DAY
     Route: 048
     Dates: start: 20251004, end: 20251012
  11. DEXAMETHASONE SODIUM PHOSPHATE [Concomitant]
     Active Substance: DEXAMETHASONE SODIUM PHOSPHATE
     Indication: Lymphadenopathy
     Dosage: 2.5 MG, 1X/DAY
     Route: 037
     Dates: start: 20251017, end: 20251017
  12. DEXAMETHASONE SODIUM PHOSPHATE [Concomitant]
     Active Substance: DEXAMETHASONE SODIUM PHOSPHATE
     Dosage: 2.5 MG, 1X/DAY
     Route: 037
     Dates: start: 20251020, end: 20251020

REACTIONS (2)
  - Myelosuppression [Not Recovered/Not Resolved]
  - Off label use [Unknown]

NARRATIVE: CASE EVENT DATE: 20251017
